FAERS Safety Report 4663495-4 (Version None)
Quarter: 2005Q2

REPORT INFORMATION
  Report Type: 
  Country: None (occurrence: None)
  Receive Date: 20050517
  Receipt Date: 20050329
  Transmission Date: 20051028
  Serious: Yes (Death, Life-Threatening)
  Sender: FDA-Public Use
  Company Number: US-GLAXOSMITHKLINE-A0551771A

PATIENT
  Age: 81 Year
  Sex: Male
  Weight: 75.9 kg

DRUGS (8)
  1. PAXIL CR [Suspect]
     Indication: DEPRESSION
     Dosage: 25MG PER DAY
     Route: 048
     Dates: start: 20050209
  2. AMBIEN [Concomitant]
     Indication: INSOMNIA
     Dosage: 10MG PER DAY
     Route: 065
  3. XANAX [Concomitant]
     Indication: ANXIETY
     Dosage: 1MG TWICE PER DAY
     Route: 065
  4. DESYREL [Concomitant]
     Indication: INSOMNIA
     Dosage: 100MG PER DAY
     Route: 065
  5. ATENOLOL [Concomitant]
     Indication: HYPERTENSION
     Dosage: 25MG PER DAY
     Route: 065
  6. LISINOPRIL [Concomitant]
     Indication: HYPERTENSION
     Dosage: 20MG IN THE MORNING
     Route: 065
  7. LOPID [Concomitant]
     Indication: BLOOD CHOLESTEROL INCREASED
     Dosage: 600MG PER DAY
     Route: 065
  8. ZOCOR [Concomitant]
     Indication: BLOOD CHOLESTEROL INCREASED
     Dosage: 40MG AT NIGHT
     Route: 065

REACTIONS (6)
  - COMPLETED SUICIDE [None]
  - CONSTIPATION [None]
  - DECREASED INTEREST [None]
  - DEPRESSION [None]
  - GUN SHOT WOUND [None]
  - SLEEP DISORDER [None]
